FAERS Safety Report 16611494 (Version 2)
Quarter: 2019Q3

REPORT INFORMATION
  Report Type: Spontaneous
  Country: US (occurrence: US)
  Receive Date: 20190722
  Receipt Date: 20190722
  Transmission Date: 20191004
  Serious: No
  Sender: FDA-Public Use
  Company Number: US-GALDERMA-US19039081

PATIENT
  Age: 24 Year
  Sex: Female

DRUGS (5)
  1. PROACTIV CLEANSING BODY BAR [Concomitant]
     Active Substance: SALICYLIC ACID
     Indication: SKIN HYPERPIGMENTATION
     Route: 061
     Dates: start: 201802, end: 201810
  2. PROACTIV MOISTURE REPAIR [Concomitant]
     Active Substance: COSMETICS
     Indication: SKIN HYPERPIGMENTATION
     Route: 061
     Dates: start: 201802, end: 201810
  3. PROACTIV MD ADAPALENE ACNE TREATMENT [Suspect]
     Active Substance: ADAPALENE
     Indication: SKIN HYPERPIGMENTATION
     Dosage: 0.1%
     Route: 061
     Dates: start: 201802, end: 201810
  4. PROACTIV MD DAILY OIL CONTROL SPF 30 [Suspect]
     Active Substance: AVOBENZONE\OCTISALATE\OCTOCRYLENE
     Indication: SKIN HYPERPIGMENTATION
     Route: 061
     Dates: start: 201802, end: 201810
  5. PROACTIV MD DEEP CLEANSING FACE WASH [Concomitant]
     Active Substance: COSMETICS
     Indication: SKIN HYPERPIGMENTATION
     Route: 061
     Dates: start: 201802, end: 201810

REACTIONS (4)
  - Skin burning sensation [Recovered/Resolved]
  - Dry skin [Recovered/Resolved]
  - Product use in unapproved indication [Recovered/Resolved]
  - Skin exfoliation [Recovered/Resolved]

NARRATIVE: CASE EVENT DATE: 201802
